FAERS Safety Report 18251832 (Version 1)
Quarter: 2020Q3

REPORT INFORMATION
  Report Type: Spontaneous
  Country: US (occurrence: US)
  Receive Date: 20200506
  Receipt Date: 20200506
  Transmission Date: 20201103
  Serious: No
  Sender: FDA-Public Use
  Company Number: None

PATIENT
  Age: 54 Year
  Sex: Male

DRUGS (6)
  1. AZITHROMYCIN ANHYDROUS. [Suspect]
     Active Substance: AZITHROMYCIN ANHYDROUS
  2. PERAMIVIR [Suspect]
     Active Substance: PERAMIVIR
  3. CEFTRIAXONE. [Suspect]
     Active Substance: CEFTRIAXONE
  4. LEVOFLOXACIN. [Suspect]
     Active Substance: LEVOFLOXACIN
  5. LOPINAVIR?RITONAVIR [Suspect]
     Active Substance: LOPINAVIR\RITONAVIR
     Indication: COVID-19
     Dosage: ?          OTHER DOSE:400/100 MG;?
     Route: 048
     Dates: start: 2020
  6. TAZOBACTAM [Suspect]
     Active Substance: TAZOBACTAM

REACTIONS (2)
  - Chills [None]
  - Myalgia [None]
